FAERS Safety Report 10062173 (Version 1)
Quarter: 2014Q2

REPORT INFORMATION
  Report Type: Spontaneous
  Country: US (occurrence: None)
  Receive Date: 20140404
  Receipt Date: 20140404
  Transmission Date: 20141212
  Serious: Yes (Hospitalization)
  Sender: FDA-Public Use
  Company Number: None

PATIENT
  Age: 59 Year
  Sex: Male

DRUGS (1)
  1. NEXAVAR [Suspect]
     Indication: HEPATIC CANCER
     Route: 048
     Dates: start: 20140314, end: 20140319

REACTIONS (2)
  - Abdominal pain upper [None]
  - Liver function test abnormal [None]
